FAERS Safety Report 19935160 (Version 1)
Quarter: 2021Q4

REPORT INFORMATION
  Report Type: Spontaneous
  Country: US (occurrence: US)
  Receive Date: 20211008
  Receipt Date: 20211008
  Transmission Date: 20220303
  Serious: No
  Sender: FDA-Public Use
  Company Number: US-SA-SAC20210930000046

PATIENT
  Age: 60 Year
  Sex: Female

DRUGS (12)
  1. KEVZARA [Suspect]
     Active Substance: SARILUMAB
     Indication: Rheumatoid arthritis
     Dosage: 200 MG, QOW
     Route: 058
     Dates: start: 20210927
  2. BENAZEPRIL HYDROCHLORIDE [Concomitant]
     Active Substance: BENAZEPRIL HYDROCHLORIDE
  3. DILTIAZEM HYDROCHLORIDE [Concomitant]
     Active Substance: DILTIAZEM HYDROCHLORIDE
  4. DULOXETINE HYDROCHLORIDE [Concomitant]
     Active Substance: DULOXETINE HYDROCHLORIDE
  5. LINZESS [Concomitant]
     Active Substance: LINACLOTIDE
  6. MECLIZINE HYDROCHLORIDE [Concomitant]
     Active Substance: MECLIZINE HYDROCHLORIDE
  7. ONDANSETRON [Concomitant]
     Active Substance: ONDANSETRON
  8. PANTOPRAZOLE [Concomitant]
     Active Substance: PANTOPRAZOLE
  9. VITAMIN D NOS [Concomitant]
     Active Substance: VITAMIN D NOS
  10. HYDROCHLOROTHIAZIDE [Concomitant]
     Active Substance: HYDROCHLOROTHIAZIDE
  11. LEVOTHYROXINE [Concomitant]
     Active Substance: LEVOTHYROXINE
  12. METHOCARBAMOL [Concomitant]
     Active Substance: METHOCARBAMOL

REACTIONS (4)
  - Arthralgia [Unknown]
  - Depressed mood [Unknown]
  - Limb injury [Unknown]
  - Mobility decreased [Unknown]
